FAERS Safety Report 22974631 (Version 2)
Quarter: 2023Q4

REPORT INFORMATION
  Report Type: Spontaneous
  Country: US (occurrence: US)
  Receive Date: 20230923
  Receipt Date: 20231011
  Transmission Date: 20240110
  Serious: No
  Sender: FDA-Public Use
  Company Number: US-OPELLA-2023OHG008527

PATIENT

DRUGS (1)
  1. XYZAL [Suspect]
     Active Substance: LEVOCETIRIZINE DIHYDROCHLORIDE

REACTIONS (1)
  - Pruritus [Unknown]
